FAERS Safety Report 22623504 (Version 1)
Quarter: 2023Q2

REPORT INFORMATION
  Report Type: Spontaneous
  Country: CN (occurrence: CN)
  Receive Date: 20230621
  Receipt Date: 20230621
  Transmission Date: 20230722
  Serious: Yes (Hospitalization, Other)
  Sender: FDA-Public Use
  Company Number: None

PATIENT
  Age: 49 Year
  Sex: Female
  Weight: 65 kg

DRUGS (2)
  1. CYCLOPHOSPHAMIDE [Suspect]
     Active Substance: CYCLOPHOSPHAMIDE
     Indication: Plasma cell myeloma
     Dosage: 500 MG, Q7D, DILUTED WITH 0.9% SODIUM CHLORIDE INJECTION 500 ML
     Route: 041
     Dates: start: 20230506, end: 20230513
  2. SODIUM CHLORIDE [Suspect]
     Active Substance: SODIUM CHLORIDE
     Indication: Medication dilution
     Dosage: 0.9% 500 ML, Q7D (DOSAGE FORM: INJECTION) USED TO DILUTE CYCLOPHOSPHAMIDE FOR INJECTION 500 MG
     Route: 041
     Dates: start: 20230506, end: 20230513

REACTIONS (1)
  - Myelosuppression [Unknown]

NARRATIVE: CASE EVENT DATE: 20230516
